FAERS Safety Report 24312165 (Version 1)
Quarter: 2024Q3

REPORT INFORMATION
  Report Type: Spontaneous
  Country: GB (occurrence: GB)
  Receive Date: 20240912
  Receipt Date: 20240912
  Transmission Date: 20241016
  Serious: Yes (Other)
  Sender: TEVA
  Company Number: GB-MHRA-TPP17487819C15244238YC1725026841314

PATIENT
  Age: 87 Year
  Sex: Female
  Weight: 77 kg

DRUGS (24)
  1. DOXYCYCLINE [Suspect]
     Active Substance: DOXYCYCLINE\DOXYCYCLINE HYCLATE
     Indication: Infected cyst
     Dosage: TWO NOW THEN ONE DAILY
     Route: 065
     Dates: start: 20240827
  2. MINERAL OIL\PARAFFIN [Concomitant]
     Active Substance: MINERAL OIL\PARAFFIN
     Indication: Ill-defined disorder
     Dosage: APPLY ONCE DAILY TO LEGS, TPP YC - PLEASE RECLASSIFY
     Dates: start: 20240806
  3. ROTIGOTINE [Concomitant]
     Active Substance: ROTIGOTINE
     Indication: Ill-defined disorder
     Dosage: APPLY ONE DAILY, TPP YC - PLEASE RECLASSIFY
     Dates: start: 20230804
  4. CODEINE PHOSPHATE [Concomitant]
     Active Substance: CODEINE PHOSPHATE
     Indication: Ill-defined disorder
     Dosage: TAKE ONE OR TWO UP TO FOUR TIMES/DAY.NOT FOR LONG TERM USE, TPP YC - PLEASE RECLASSIFY
     Dates: start: 20240729, end: 20240823
  5. AMANTADINE HYDROCHLORIDE [Concomitant]
     Active Substance: AMANTADINE HYDROCHLORIDE
     Indication: Ill-defined disorder
     Dosage: TAKE 5ML (5MG) EVERY MORNING AND TAKE 5ML (5MG)..., TPP YC - PLEASE RECLASSIFY
     Dates: start: 20231023
  6. RASAGILINE [Concomitant]
     Active Substance: RASAGILINE\RASAGILINE MESYLATE
     Indication: Ill-defined disorder
     Dosage: TPP YC - PLEASE RECLASSIFY
     Dates: start: 20220421
  7. FLUCLOXACILLIN [Concomitant]
     Active Substance: FLUCLOXACILLIN
     Indication: Ill-defined disorder
     Dosage: TPP YC - PLEASE RECLASSIFY
     Dates: start: 20240822, end: 20240829
  8. FUROSEMIDE [Concomitant]
     Active Substance: FUROSEMIDE
     Indication: Ill-defined disorder
     Dosage: MORNING, TPP YC - PLEASE RECLASSIFY
     Dates: start: 20240731, end: 20240828
  9. ALLEVYN GENTLE BORDER [Concomitant]
     Indication: Ill-defined disorder
     Dosage: USE AS DIRECTED, TPP YC - PLEASE RECLASSIFY
     Dates: start: 20240828
  10. LEVOTHYROXINE [Concomitant]
     Active Substance: LEVOTHYROXINE\LEVOTHYROXINE SODIUM
     Indication: Ill-defined disorder
     Dosage: TAKE ONE EACH MORNING ON AN EMTY STOMACH AT LEA..., TPP YC - PLEASE RECLASSIFY
     Dates: start: 20220704
  11. METFORMIN [Concomitant]
     Active Substance: METFORMIN HYDROCHLORIDE
     Indication: Ill-defined disorder
     Dosage: TAKE 2 IN THE MORNING WITH BREAKFAST AND 2 WITH..., TPP YC - PLEASE RECLASSIFY
     Dates: start: 20220421
  12. Biatain silicone [Concomitant]
     Indication: Ill-defined disorder
     Dosage: USE AS DIRECTED, TPP YC - PLEASE RECLASSIFY, NON-MEDICINAL PRODUCT
     Dates: start: 20240717, end: 20240814
  13. ADCAL [Concomitant]
     Indication: Ill-defined disorder
     Dosage: AT BEDTIME, TPP YC - PLEASE RECLASSIFY
     Dates: start: 20230323
  14. RISEDRONATE SODIUM [Concomitant]
     Active Substance: RISEDRONATE SODIUM
     Indication: Ill-defined disorder
     Dosage: WHILE ON STE..., TPP YC - PLEASE RECLASSIFY
     Dates: start: 20220801
  15. GLICLAZIDE [Concomitant]
     Active Substance: GLICLAZIDE
     Indication: Ill-defined disorder
     Dosage: WITH LUNCH, TPP YC - PLEASE RECLASSIFY
     Dates: start: 20240801
  16. CO BENELDOPA [Concomitant]
     Indication: Ill-defined disorder
     Dosage: TAKE ONE AT 07:00, 11:00, 15:00 AND 19:00, TPP YC - PLEASE RECLASSIFY
     Dates: start: 20220421
  17. BETAMETHASONE VALERATE [Concomitant]
     Active Substance: BETAMETHASONE VALERATE
     Indication: Ill-defined disorder
     Dosage: MODERATE POTENCY STEROID CREAM -  APPLY TWICE A..., TPP YC - PLEASE RECLASSIFY
     Dates: start: 20240808
  18. ACETAMINOPHEN [Concomitant]
     Active Substance: ACETAMINOPHEN
     Indication: Ill-defined disorder
     Dosage: TAKE ONE OR TWO TABLETS UP TO FOUR TIMES A DAY ..., TPP YC - PLEASE RECLASSIFY
     Dates: start: 20220421
  19. LINAGLIPTIN [Concomitant]
     Active Substance: LINAGLIPTIN
     Indication: Ill-defined disorder
     Dosage: TPP YC - PLEASE RECLASSIFY
     Dates: start: 20240208
  20. ATORVASTATIN [Concomitant]
     Active Substance: ATORVASTATIN
     Indication: Ill-defined disorder
     Dosage: IN THE EVENING, TPP YC - PLEASE RECLASSIFY
     Dates: start: 20220421
  21. PREDNISOLONE [Concomitant]
     Active Substance: PREDNISOLONE
     Indication: Ill-defined disorder
     Dosage: TPP YC - PLEASE RECLASSIFY
     Route: 048
     Dates: start: 20231122
  22. OMEPRAZOLE [Concomitant]
     Active Substance: OMEPRAZOLE
     Indication: Ill-defined disorder
     Dosage: AS GASTROPROTECTION WHILE TAKING..., TPP YC - PLEASE RECLASSIFY
     Dates: start: 20221019
  23. SENNA [Concomitant]
     Active Substance: SENNA LEAF\SENNOSIDES\SENNOSIDES A AND B
     Indication: Ill-defined disorder
     Dosage: AT NIGHT, TPP YC - PLEASE RECLASSIFY
     Dates: start: 20220421
  24. LISINOPRIL [Concomitant]
     Active Substance: LISINOPRIL
     Indication: Ill-defined disorder
     Dosage: TPP YC - PLEASE RECLASSIFY
     Dates: start: 20221110

REACTIONS (4)
  - Tachycardia [Unknown]
  - Vision blurred [Unknown]
  - Somnolence [Recovering/Resolving]
  - Tremor [Unknown]
